FAERS Safety Report 6882572-0 (Version None)
Quarter: 2010Q3

REPORT INFORMATION
  Report Type: 
  Country: None (occurrence: None)
  Receive Date: 20100701
  Receipt Date: 20100212
  Transmission Date: 20110219
  Serious: Yes (Other)
  Sender: FDA-Public Use
  Company Number: ALL1-2010-00833

PATIENT
  Sex: Male
  Weight: 83.9 kg

DRUGS (2)
  1. PENTASA [Suspect]
     Indication: CROHN'S DISEASE
     Dosage: 1000 MG, 4X/DAY;QID, ORAL
     Route: 048
     Dates: start: 20060801
  2. FOLIC ACID [Concomitant]

REACTIONS (2)
  - OFF LABEL USE [None]
  - THROMBOCYTOPENIA [None]
